FAERS Safety Report 20106756 (Version 2)
Quarter: 2021Q4

REPORT INFORMATION
  Report Type: Spontaneous
  Country: SG (occurrence: None)
  Receive Date: 20211124
  Receipt Date: 20211125
  Transmission Date: 20220303
  Serious: Yes (Other)
  Sender: FDA-Public Use
  Company Number: SG-ROCHE-2961372

PATIENT
  Age: 64 Year
  Sex: Female

DRUGS (1)
  1. HERCEPTIN [Suspect]
     Active Substance: TRASTUZUMAB
     Indication: Breast cancer
     Route: 058

REACTIONS (1)
  - Colon cancer [Unknown]
